FAERS Safety Report 8793498 (Version 1)
Quarter: 2012Q4

REPORT INFORMATION
  Report Type: 
  Country: US (occurrence: US)
  Receive Date: 20120917
  Receipt Date: 20120917
  Transmission Date: 20130627
  Serious: Yes (Death, Other)
  Sender: FDA-Public Use
  Company Number: US-PFIZER INC-2012226440

PATIENT
  Sex: Female

DRUGS (1)
  1. PREPARATION H [Suspect]
     Indication: SKIN WRINKLING
     Dosage: UNK

REACTIONS (2)
  - Death [Fatal]
  - Intentional drug misuse [Unknown]
